FAERS Safety Report 15514660 (Version 1)
Quarter: 2018Q4

REPORT INFORMATION
  Report Type: Spontaneous
  Country: US (occurrence: US)
  Receive Date: 20181016
  Receipt Date: 20181016
  Transmission Date: 20190205
  Serious: No
  Sender: FDA-Public Use
  Company Number: US-ROMARKLABS-2018-US-000048

PATIENT
  Age: 40 Year
  Sex: Male

DRUGS (1)
  1. ALINIA [Suspect]
     Active Substance: NITAZOXANIDE
     Indication: BABESIOSIS
     Dosage: 1 TAB BID 3X WEEK
     Route: 048
     Dates: start: 20170825, end: 20170825

REACTIONS (5)
  - Headache [Unknown]
  - Urine odour abnormal [Recovered/Resolved]
  - Dysuria [Recovered/Resolved]
  - Pruritus generalised [Unknown]
  - Chromaturia [Recovered/Resolved]

NARRATIVE: CASE EVENT DATE: 20170825
